FAERS Safety Report 8762679 (Version 3)
Quarter: 2013Q2

REPORT INFORMATION
  Report Type: Report from Study
  Country: JP (occurrence: JP)
  Receive Date: 20120831
  Receipt Date: 20130429
  Transmission Date: 20140414
  Serious: Yes (Hospitalization, Other)
  Sender: FDA-Public Use
  Company Number: JP-B.I. PHARMACEUTICALS,INC./RIDGEFIELD-2012-EU-02946GD

PATIENT
  Age: 60 Year
  Sex: Male
  Weight: 81 kg

DRUGS (8)
  1. DABIGATRAN ETEXILATE [Suspect]
     Indication: ATRIAL FIBRILLATION
     Dosage: 300 MG
     Route: 048
     Dates: start: 20110422, end: 20110616
  2. DABIGATRAN ETEXILATE [Suspect]
     Dosage: 220 MG
     Route: 048
     Dates: start: 20110619, end: 20110906
  3. BAYASPIRIN [Suspect]
     Dosage: 100 MG
     Route: 048
     Dates: start: 2008, end: 20110802
  4. METGLUCO [Concomitant]
     Dosage: 750 MG
     Route: 048
  5. KINEDAK [Concomitant]
     Dosage: 150 MG
     Route: 048
  6. GLUFAST [Concomitant]
     Dosage: 10 MG
     Route: 048
  7. TAKEPRON [Concomitant]
     Dosage: 15 MG
     Route: 048
     Dates: start: 20110614
  8. VASOLAN [Concomitant]
     Dosage: 120 MG
     Route: 048
     Dates: start: 20110622

REACTIONS (3)
  - Cardiac tamponade [Recovered/Resolved]
  - Hypotension [Unknown]
  - Haemoptysis [Recovered/Resolved]
